FAERS Safety Report 17468315 (Version 1)
Quarter: 2020Q1

REPORT INFORMATION
  Report Type: Spontaneous
  Country: US (occurrence: US)
  Receive Date: 20200227
  Receipt Date: 20200227
  Transmission Date: 20200409
  Serious: Yes (Other)
  Sender: FDA-Public Use
  Company Number: US-RECKITT BENCKISER HEALTHCARE INT LIMITED-RB-82383-2020

PATIENT
  Age: 12 Year
  Sex: Male

DRUGS (1)
  1. HYDROCORTISONE. [Suspect]
     Active Substance: HYDROCORTISONE
     Indication: PRODUCT USED FOR UNKNOWN INDICATION
     Dosage: UNK
     Route: 061

REACTIONS (10)
  - Chronic gastritis [Unknown]
  - Erythema [Unknown]
  - Large intestinal ulcer [Unknown]
  - Colitis [Unknown]
  - Gastric ulcer [Unknown]
  - Granuloma [Unknown]
  - Crohn^s disease [Unknown]
  - Drug ineffective [Not Recovered/Not Resolved]
  - Aphthous ulcer [Unknown]
  - Oedema [Unknown]
